FAERS Safety Report 6843610-4 (Version None)
Quarter: 2010Q3

REPORT INFORMATION
  Report Type: 
  Country: None (occurrence: None)
  Receive Date: 20100715
  Receipt Date: 20100706
  Transmission Date: 20110219
  Serious: Yes (Other)
  Sender: FDA-Public Use
  Company Number: DE-ASTRAZENECA-2010SE29565

PATIENT
  Age: 68 Year
  Sex: Male
  Weight: 77 kg

DRUGS (3)
  1. METOPROLOL SUCCINATE [Suspect]
     Indication: HYPERTENSION
     Dosage: 95 MG
     Route: 048
  2. METOPROLOL SUCCINATE [Suspect]
     Route: 048
     Dates: start: 20100101, end: 20100301
  3. ENALAPRIL MALEATE [Concomitant]
     Indication: HYPERTENSION
     Dates: start: 20060101

REACTIONS (7)
  - ANXIETY [None]
  - ARRHYTHMIA [None]
  - DELUSIONAL PERCEPTION [None]
  - HALLUCINATION [None]
  - HYPERHIDROSIS [None]
  - PANIC REACTION [None]
  - TACHYCARDIA [None]
